FAERS Safety Report 4760389-0 (Version None)
Quarter: 2005Q3

REPORT INFORMATION
  Report Type: 
  Country: None (occurrence: None)
  Receive Date: 20050902
  Receipt Date: 20041221
  Transmission Date: 20060218
  Serious: Yes (Other)
  Sender: FDA-Public Use
  Company Number: JP-GLAXOSMITHKLINE-B0362875A

PATIENT
  Age: 75 Year
  Sex: Female

DRUGS (1)
  1. VALTREX [Suspect]
     Indication: HERPES ZOSTER
     Route: 048
     Dates: start: 20040501

REACTIONS (7)
  - CONFUSIONAL STATE [None]
  - DELIRIUM [None]
  - HYPOCOMPLEMENTAEMIA [None]
  - IMMUNE SYSTEM DISORDER [None]
  - LEUKOCYTOCLASTIC VASCULITIS [None]
  - RASH MACULO-PAPULAR [None]
  - TYPE III IMMUNE COMPLEX MEDIATED REACTION [None]
